FAERS Safety Report 8538549-2 (Version None)
Quarter: 2012Q3

REPORT INFORMATION
  Report Type: 
  Country: None (occurrence: None)
  Receive Date: 20120726
  Receipt Date: 20120716
  Transmission Date: 20120928
  Serious: Yes (Other)
  Sender: FDA-Public Use
  Company Number: US-JNJFOC-20120709203

PATIENT
  Sex: Female

DRUGS (20)
  1. LASIX [Concomitant]
     Indication: CEREBROSPINAL FLUID RETENTION
     Route: 065
     Dates: start: 20030101, end: 20090101
  2. SAVELLA [Suspect]
     Route: 048
     Dates: start: 20120101, end: 20120101
  3. CELEBREX [Concomitant]
     Indication: PAIN
     Route: 048
     Dates: start: 20040101, end: 20090101
  4. POTASSIUM CHLORIDE [Concomitant]
     Indication: ELECTROLYTE SUBSTITUTION THERAPY
     Route: 065
     Dates: start: 20030101, end: 20030101
  5. NEURONTIN [Concomitant]
     Indication: PAIN
     Route: 048
     Dates: start: 20030101
  6. NEXIUM [Concomitant]
     Indication: GASTROOESOPHAGEAL REFLUX DISEASE
     Route: 065
     Dates: start: 20030101
  7. SAVELLA [Suspect]
     Indication: FIBROMYALGIA
     Route: 048
     Dates: start: 20120501, end: 20120101
  8. DURAGESIC-100 [Suspect]
     Route: 062
     Dates: start: 20040101
  9. DURAGESIC-100 [Suspect]
     Indication: FIBROMYALGIA
     Route: 062
  10. DURAGESIC-100 [Suspect]
     Route: 062
     Dates: start: 20120101, end: 20120501
  11. SAVELLA [Suspect]
     Route: 048
     Dates: start: 20120101, end: 20120101
  12. SAVELLA [Suspect]
     Route: 048
     Dates: start: 20120101
  13. DURAGESIC-100 [Suspect]
     Route: 062
     Dates: start: 20040101
  14. DURAGESIC-100 [Suspect]
     Route: 062
     Dates: start: 20120101, end: 20120501
  15. SAVELLA [Suspect]
     Indication: PAIN
     Route: 048
     Dates: start: 20120501, end: 20120101
  16. NEURONTIN [Concomitant]
     Indication: FIBROMYALGIA
     Route: 048
     Dates: start: 20030101
  17. CELEBREX [Concomitant]
     Indication: FIBROMYALGIA
     Route: 048
     Dates: start: 20040101, end: 20090101
  18. DURAGESIC-100 [Suspect]
     Indication: PAIN
     Route: 062
  19. SAVELLA [Suspect]
     Route: 048
     Dates: start: 20120101
  20. LIPITOR [Concomitant]
     Indication: BLOOD CHOLESTEROL
     Route: 065
     Dates: start: 20040101, end: 20100101

REACTIONS (9)
  - BENIGN INTRACRANIAL HYPERTENSION [None]
  - WEIGHT DECREASED [None]
  - NIGHT SWEATS [None]
  - WITHDRAWAL SYNDROME [None]
  - GLUCOSE TOLERANCE IMPAIRED [None]
  - FATIGUE [None]
  - BREAKTHROUGH PAIN [None]
  - PARAESTHESIA [None]
  - TREMOR [None]
